FAERS Safety Report 9553306 (Version 1)
Quarter: 2013Q3

REPORT INFORMATION
  Report Type: Spontaneous
  Country: US (occurrence: None)
  Receive Date: 20130724
  Receipt Date: 20130724
  Transmission Date: 20140515
  Serious: Yes (Hospitalization)
  Sender: FDA-Public Use
  Company Number: PHEH2012US022551

PATIENT
  Sex: Female
  Weight: 188 kg

DRUGS (2)
  1. GLEEVEC [Suspect]
     Indication: ACUTE MYELOID LEUKAEMIA
  2. DIOVAN (VALSARTAN) [Concomitant]

REACTIONS (2)
  - Acute myeloid leukaemia [None]
  - Leukaemia recurrent [None]
